FAERS Safety Report 12276328 (Version 1)
Quarter: 2016Q2

REPORT INFORMATION
  Report Type: Spontaneous
  Country: BR (occurrence: BR)
  Receive Date: 20160418
  Receipt Date: 20160418
  Transmission Date: 20160815
  Serious: Yes (Other)
  Sender: FDA-Public Use
  Company Number: BR-ROCHE-1740934

PATIENT
  Age: 67 Year
  Sex: Male
  Weight: 67 kg

DRUGS (1)
  1. MABTHERA [Suspect]
     Active Substance: RITUXIMAB
     Indication: PRODUCT USED FOR UNKNOWN INDICATION
     Dosage: 155 MG
     Route: 042
     Dates: start: 20160301

REACTIONS (3)
  - Tremor [Recovered/Resolved]
  - Hyperaemia [Recovered/Resolved]
  - Chills [Unknown]

NARRATIVE: CASE EVENT DATE: 20160301
